FAERS Safety Report 19204024 (Version 3)
Quarter: 2021Q2

REPORT INFORMATION
  Report Type: Spontaneous
  Country: CO (occurrence: CO)
  Receive Date: 20210503
  Receipt Date: 20210526
  Transmission Date: 20210717
  Serious: No
  Sender: FDA-Public Use
  Company Number: CO-JNJFOC-20210432825

PATIENT
  Age: 32 Year
  Sex: Male
  Weight: 67 kg

DRUGS (3)
  1. INVEGA SUSTENNA [Suspect]
     Active Substance: PALIPERIDONE PALMITATE
  2. INVEGA SUSTENNA [Suspect]
     Active Substance: PALIPERIDONE PALMITATE
     Indication: SCHIZOPHRENIA
     Dosage: LATEST APPLICATION ON 12?APR?2021
     Route: 030
     Dates: start: 200501
  3. INVEGA SUSTENNA [Suspect]
     Active Substance: PALIPERIDONE PALMITATE

REACTIONS (3)
  - Suspected counterfeit product [Unknown]
  - Musculoskeletal stiffness [Unknown]
  - Application site pain [Unknown]

NARRATIVE: CASE EVENT DATE: 20210412
